FAERS Safety Report 8550914-6 (Version None)
Quarter: 2012Q3

REPORT INFORMATION
  Report Type: 
  Country: None (occurrence: None)
  Receive Date: 20120730
  Receipt Date: 20110602
  Transmission Date: 20120928
  Serious: No
  Sender: FDA-Public Use
  Company Number: US-GLAXOSMITHKLINE-A0930075A

PATIENT
  Sex: Male

DRUGS (2)
  1. HYOSCINE HBR HYT [Concomitant]
  2. ZANTAC [Suspect]
     Indication: GASTROOESOPHAGEAL REFLUX DISEASE
     Dosage: .7ML TWICE PER DAY
     Route: 048
     Dates: start: 20110401, end: 20110501

REACTIONS (1)
  - DRUG INEFFECTIVE [None]
